FAERS Safety Report 8318771-0 (Version None)
Quarter: 2012Q2

REPORT INFORMATION
  Report Type: 
  Country: None (occurrence: None)
  Receive Date: 20120427
  Receipt Date: 20120418
  Transmission Date: 20120825
  Serious: Yes (Other)
  Sender: FDA-Public Use
  Company Number: CA-JNJFOC-20120409430

PATIENT
  Sex: Male
  Weight: 83.92 kg

DRUGS (2)
  1. BENADRYL [Concomitant]
     Route: 065
  2. REMICADE [Suspect]
     Indication: CROHN'S DISEASE
     Route: 042
     Dates: start: 20110301, end: 20110301

REACTIONS (4)
  - PARAESTHESIA [None]
  - INFUSION RELATED REACTION [None]
  - PYREXIA [None]
  - TREMOR [None]
